FAERS Safety Report 16340616 (Version 2)
Quarter: 2019Q2

REPORT INFORMATION
  Report Type: Spontaneous
  Country: JP (occurrence: JP)
  Receive Date: 20190522
  Receipt Date: 20190624
  Transmission Date: 20190711
  Serious: Yes (Congenital Anomaly)
  Sender: FDA-Public Use
  Company Number: JP-ASTELLAS-2019JP008590

PATIENT
  Sex: Female

DRUGS (17)
  1. AZILVA [Concomitant]
     Active Substance: AZILSARTAN KAMEDOXOMIL
     Indication: FOETAL EXPOSURE DURING PREGNANCY
     Route: 064
     Dates: start: 20141106, end: 20151209
  2. ALDOMET [Concomitant]
     Active Substance: METHYLDOPA
     Indication: FOETAL EXPOSURE DURING PREGNANCY
     Route: 064
     Dates: start: 20151209, end: 20160831
  3. CICLOSPORIN A [Concomitant]
     Active Substance: CYCLOSPORINE
     Indication: FOETAL EXPOSURE DURING PREGNANCY
     Dosage: UNK UNK, UNKNOWN FREQ.
     Route: 064
  4. AMLODIN [Concomitant]
     Active Substance: AMLODIPINE BESYLATE
     Route: 064
     Dates: start: 20160907
  5. GRACEPTOR [Suspect]
     Active Substance: TACROLIMUS
     Indication: FOETAL EXPOSURE DURING PREGNANCY
     Route: 064
     Dates: end: 20150819
  6. GRACEPTOR [Suspect]
     Active Substance: TACROLIMUS
     Route: 064
     Dates: start: 20150820, end: 20170104
  7. CELLCEPT [Concomitant]
     Active Substance: MYCOPHENOLATE MOFETIL\MYCOPHENOLATE MOFETIL HYDROCHLORIDE
     Route: 064
     Dates: start: 20130326, end: 20130415
  8. PREDONINE [Concomitant]
     Active Substance: PREDNISOLONE
     Indication: FOETAL EXPOSURE DURING PREGNANCY
     Route: 064
     Dates: end: 20180725
  9. CERTICAN [Concomitant]
     Active Substance: EVEROLIMUS
     Indication: FOETAL EXPOSURE DURING PREGNANCY
     Dosage: 0.5 MG, TWICE DAILY
     Route: 064
     Dates: start: 20130325, end: 20130415
  10. AMLODIN [Concomitant]
     Active Substance: AMLODIPINE BESYLATE
     Route: 064
     Dates: start: 20141204, end: 20160906
  11. METHYLPREDNISOLONE ACETATE. [Concomitant]
     Active Substance: METHYLPREDNISOLONE ACETATE
     Indication: FOETAL EXPOSURE DURING PREGNANCY
     Dosage: UNK UNK, UNKNOWN FREQ.
     Route: 064
  12. CERTICAN [Concomitant]
     Active Substance: EVEROLIMUS
     Dosage: 0.75 MG, TWICE DAILY
     Route: 064
     Dates: start: 20130416, end: 20151007
  13. IMURAN [Concomitant]
     Active Substance: AZATHIOPRINE
     Indication: FOETAL EXPOSURE DURING PREGNANCY
     Route: 064
     Dates: start: 20151104, end: 20180523
  14. CELLCEPT [Concomitant]
     Active Substance: MYCOPHENOLATE MOFETIL\MYCOPHENOLATE MOFETIL HYDROCHLORIDE
     Indication: FOETAL EXPOSURE DURING PREGNANCY
     Route: 064
     Dates: start: 2013, end: 20130325
  15. GRACEPTOR [Suspect]
     Active Substance: TACROLIMUS
     Route: 064
     Dates: start: 20170105, end: 20180523
  16. SODIUM GUALENATE HYDRATE [Concomitant]
     Active Substance: SODIUM GUALENATE MONOHYDRATE
     Indication: FOETAL EXPOSURE DURING PREGNANCY
     Dosage: UNK UNK, UNKNOWN FREQ.
     Route: 064
  17. AMLODIN [Concomitant]
     Active Substance: AMLODIPINE BESYLATE
     Indication: FOETAL EXPOSURE DURING PREGNANCY
     Route: 064
     Dates: end: 20141203

REACTIONS (1)
  - Low birth weight baby [Unknown]
